FAERS Safety Report 24200262 (Version 2)
Quarter: 2024Q3

REPORT INFORMATION
  Report Type: Spontaneous
  Country: BR (occurrence: BR)
  Receive Date: 20240812
  Receipt Date: 20240827
  Transmission Date: 20241016
  Serious: Yes (Life-Threatening, Hospitalization)
  Sender: JOHNSON AND JOHNSON
  Company Number: BR-JNJFOC-20240821497

PATIENT
  Age: 32 Year
  Sex: Male

DRUGS (15)
  1. RISPERDAL [Suspect]
     Active Substance: RISPERIDONE
     Indication: Depression
     Route: 065
  2. TRAZODONE [Concomitant]
     Active Substance: TRAZODONE HYDROCHLORIDE
  3. CLOMIPRAMINE [Concomitant]
     Active Substance: CLOMIPRAMINE
  4. CLOMIPRAMINE [Concomitant]
     Active Substance: CLOMIPRAMINE
  5. QUETIAPINE [Concomitant]
     Active Substance: QUETIAPINE
  6. SERTRALINE [Concomitant]
     Active Substance: SERTRALINE HYDROCHLORIDE
  7. BUPROPION [Concomitant]
     Active Substance: BUPROPION
  8. ESCITALOPRAM [Concomitant]
     Active Substance: ESCITALOPRAM OXALATE
  9. ARIPIPRAZOLE [Concomitant]
     Active Substance: ARIPIPRAZOLE
  10. BREXPIPRAZOLE [Concomitant]
     Active Substance: BREXPIPRAZOLE
  11. BREXPIPRAZOLE [Concomitant]
     Active Substance: BREXPIPRAZOLE
  12. LITHIUM [Concomitant]
     Active Substance: LITHIUM
     Dosage: 300MG-450MG/D,
  13. FLUVOXAMINE [Concomitant]
     Active Substance: FLUVOXAMINE
     Dosage: 150-20G/D
  14. LAMOTRIGINE [Concomitant]
     Active Substance: LAMOTRIGINE
     Dosage: 100-200MG/D
  15. VORTIOXETINE [Concomitant]
     Active Substance: VORTIOXETINE HYDROBROMIDE
     Dosage: 15MG/D

REACTIONS (14)
  - Suicide attempt [Unknown]
  - Drug ineffective [Unknown]
  - COVID-19 [Unknown]
  - Disturbance in attention [Unknown]
  - Anxiety [Unknown]
  - Affect lability [Unknown]
  - Crying [Unknown]
  - Irritability [Unknown]
  - Depressed mood [Unknown]
  - Obsessive-compulsive disorder [Unknown]
  - Social anxiety disorder [Unknown]
  - Feeling of despair [Unknown]
  - Feeling guilty [Unknown]
  - Obsessive thoughts [Unknown]
